FAERS Safety Report 5062821-4 (Version None)
Quarter: 2006Q3

REPORT INFORMATION
  Report Type: 
  Country: None (occurrence: None)
  Receive Date: 20060724
  Receipt Date: 20060724
  Transmission Date: 20061208
  Serious: Yes (Other)
  Sender: FDA-Public Use
  Company Number: None

PATIENT
  Age: 53 Year
  Sex: Female
  Weight: 90.7194 kg

DRUGS (2)
  1. AMBIEN [Suspect]
     Indication: DRUG THERAPY
     Dosage: I TOOK TWO AMBIEN ONLY ONCE PO
     Route: 048
     Dates: start: 20060630, end: 20060630
  2. AMBIEN [Suspect]
     Indication: DRUG THERAPY
     Dosage: I TOOK TWO AMBIEN ONLY ONCE PO
     Route: 048
     Dates: start: 20060716, end: 20060716

REACTIONS (2)
  - ABNORMAL BEHAVIOUR [None]
  - ABNORMAL SLEEP-RELATED EVENT [None]
